FAERS Safety Report 9518597 (Version 1)
Quarter: 2013Q3

REPORT INFORMATION
  Report Type: Spontaneous
  Country: US (occurrence: None)
  Receive Date: 20130910
  Receipt Date: 20130910
  Transmission Date: 20140515
  Serious: Yes (Other)
  Sender: FDA-Public Use
  Company Number: CO-KP-US-2013-005

PATIENT
  Age: 9 Year
  Sex: Female

DRUGS (1)
  1. CLONIDINE (CLONIDINE) [Suspect]

REACTIONS (1)
  - Convulsion [None]
